FAERS Safety Report 14893183 (Version 1)
Quarter: 2018Q2

REPORT INFORMATION
  Report Type: Spontaneous
  Country: US (occurrence: US)
  Receive Date: 20180426
  Receipt Date: 20180426
  Transmission Date: 20180711
  Serious: No
  Sender: FDA-Public Use
  Company Number: None

PATIENT
  Age: 38 Year
  Sex: Female
  Weight: 109.77 kg

DRUGS (1)
  1. MIRENA [Suspect]
     Active Substance: LEVONORGESTREL
     Dates: start: 20140419

REACTIONS (5)
  - Haemorrhage [None]
  - Device dislocation [None]
  - Ovarian cyst [None]
  - Muscle spasms [None]
  - Cervical cyst [None]

NARRATIVE: CASE EVENT DATE: 20180420
